FAERS Safety Report 17447959 (Version 3)
Quarter: 2020Q3

REPORT INFORMATION
  Report Type: Spontaneous
  Country: GB (occurrence: GB)
  Receive Date: 20200222
  Receipt Date: 20200707
  Transmission Date: 20201102
  Serious: Yes (Death, Hospitalization, Other)
  Sender: FDA-Public Use
  Company Number: GB-ACCORD-173347

PATIENT
  Age: 48 Year
  Sex: Male

DRUGS (4)
  1. AMITRIPTYLINE [Suspect]
     Active Substance: AMITRIPTYLINE
     Indication: DEPRESSION
     Dates: start: 201801, end: 20180416
  2. AMITRIPTYLINE [Interacting]
     Active Substance: AMITRIPTYLINE
     Indication: DEPRESSION
     Dates: start: 20180416, end: 20180523
  3. AMITRIPTYLINE [Interacting]
     Active Substance: AMITRIPTYLINE
     Indication: DEPRESSION
     Dates: start: 20180523
  4. OXYCODONE [Interacting]
     Active Substance: OXYCODONE
     Indication: ANALGESIC THERAPY
     Dates: start: 201610

REACTIONS (7)
  - Product prescribing issue [Unknown]
  - Overdose [Unknown]
  - Confusional state [Not Recovered/Not Resolved]
  - Respiratory depression [Fatal]
  - Toxicity to various agents [Fatal]
  - Sedation complication [Not Recovered/Not Resolved]
  - Drug interaction [Fatal]

NARRATIVE: CASE EVENT DATE: 201804
